FAERS Safety Report 5570735-6 (Version None)
Quarter: 2007Q4

REPORT INFORMATION
  Report Type: 
  Country: None (occurrence: None)
  Receive Date: 20071221
  Receipt Date: 20071214
  Transmission Date: 20080405
  Serious: Yes (Disabling)
  Sender: FDA-Public Use
  Company Number: US-ASTRAZENECA-2007UW24186

PATIENT
  Age: 21741 Day
  Sex: Male
  Weight: 92.7 kg

DRUGS (4)
  1. CRESTOR [Suspect]
     Indication: HYPERCHOLESTEROLAEMIA
     Route: 048
     Dates: start: 20050301, end: 20051101
  2. METFORMIN HCL [Concomitant]
  3. NORVASC [Concomitant]
  4. ALTACE [Concomitant]
     Indication: HYPERTENSION
     Route: 048
     Dates: start: 20050401, end: 20051101

REACTIONS (3)
  - AUTOIMMUNE HEPATITIS [None]
  - OSTEOPOROSIS [None]
  - SPINAL COMPRESSION FRACTURE [None]
